FAERS Safety Report 5679954-1 (Version None)
Quarter: 2008Q1

REPORT INFORMATION
  Report Type: 
  Country: None (occurrence: None)
  Receive Date: 20080324
  Receipt Date: 20080313
  Transmission Date: 20080703
  Serious: Yes (Death, Hospitalization)
  Sender: FDA-Public Use
  Company Number: GXKR2008GB02643

PATIENT
  Age: 50 Year
  Sex: Female

DRUGS (2)
  1. FLUOXETINE (NGHX) (FLUOXETINE) UNKNOWN [Suspect]
     Indication: DEPRESSION
  2. SULPIRIDE (SULPIRIDE) [Suspect]
     Indication: SCHIZOPHRENIA

REACTIONS (5)
  - CONFUSIONAL STATE [None]
  - DRUG LEVEL ABOVE THERAPEUTIC [None]
  - DRUG TOXICITY [None]
  - MALAISE [None]
  - PNEUMONIA [None]
